FAERS Safety Report 5527484-X (Version None)
Quarter: 2007Q4

REPORT INFORMATION
  Report Type: 
  Country: None (occurrence: None)
  Receive Date: 20071128
  Receipt Date: 20071123
  Transmission Date: 20080405
  Serious: Yes (Death, Other)
  Sender: FDA-Public Use
  Company Number: PHFR2007GB03337

PATIENT
  Age: 44 Year
  Sex: Female

DRUGS (9)
  1. SANDOSTATIN [Suspect]
     Indication: FISTULA DISCHARGE
     Dosage: 1000 UG EVERY 24 HOURS
     Route: 058
     Dates: start: 20071102, end: 20071114
  2. DIAMORPHINE [Concomitant]
     Indication: PAIN
     Dosage: 100 MG/DAY
     Route: 058
     Dates: start: 20071108, end: 20071114
  3. CYCLIZINE [Concomitant]
     Indication: NAUSEA
     Dosage: 150 MG/DAY
     Route: 048
     Dates: start: 20071028, end: 20071112
  4. OMEPRAZOLE [Concomitant]
     Indication: PROPHYLAXIS AGAINST GASTROINTESTINAL ULCER
     Dosage: 20 MG/DAY
     Route: 048
     Dates: start: 20071028, end: 20071113
  5. FENTANYL [Concomitant]
     Indication: PAIN
     Dosage: 150 MG
     Route: 062
     Dates: start: 20071028, end: 20071114
  6. LOPERAMIDE HCL [Concomitant]
     Indication: FISTULA DISCHARGE
     Dosage: 16 MG
     Route: 048
     Dates: start: 20071108, end: 20071113
  7. DEXAMETHASONE [Concomitant]
     Dosage: 2 MG
     Route: 048
     Dates: start: 20071028, end: 20071114
  8. PARACETAMOL [Concomitant]
     Indication: PAIN
     Dosage: 4 G/DAY
     Route: 048
     Dates: start: 20071028, end: 20071114
  9. CEFACLOR [Concomitant]
     Indication: LOWER RESPIRATORY TRACT INFECTION
     Dosage: 1500 MG/DAY
     Route: 048
     Dates: start: 20071108, end: 20071112

REACTIONS (5)
  - ADDISON'S DISEASE [None]
  - HYPERKALAEMIA [None]
  - HYPONATRAEMIA [None]
  - MALIGNANT NEOPLASM PROGRESSION [None]
  - RENAL FAILURE [None]
